FAERS Safety Report 5221887-9 (Version None)
Quarter: 2007Q1

REPORT INFORMATION
  Report Type: 
  Country: None (occurrence: None)
  Receive Date: 20070129
  Receipt Date: 20070117
  Transmission Date: 20070707
  Serious: Yes (Death)
  Sender: FDA-Public Use
  Company Number: US-PURDUE-USA_2006_0025292

PATIENT
  Age: 51 Year
  Sex: Male
  Weight: 76 kg

DRUGS (1)
  1. OXYCONTIN [Suspect]
     Indication: SPINAL OSTEOARTHRITIS
     Dosage: 240 MG, BID
     Route: 048
     Dates: start: 20050303, end: 20060924

REACTIONS (3)
  - INTENTIONAL DRUG MISUSE [None]
  - MULTIPLE DRUG OVERDOSE ACCIDENTAL [None]
  - PNEUMONIA BACTERIAL [None]
